FAERS Safety Report 17546301 (Version 1)
Quarter: 2020Q1

REPORT INFORMATION
  Report Type: Report from Study
  Country: DE (occurrence: DE)
  Receive Date: 20200316
  Receipt Date: 20200316
  Transmission Date: 20200409
  Serious: Yes (Death)
  Sender: FDA-Public Use
  Company Number: DE-CELGENEUS-DEU-2015025176

PATIENT
  Age: 72 Year
  Sex: Female
  Weight: 38 kg

DRUGS (7)
  1. DEXAMETHASONE. [Suspect]
     Active Substance: DEXAMETHASONE
     Indication: PLASMA CELL MYELOMA
     Route: 058
     Dates: start: 20140402
  2. DEXAMETHASONE. [Suspect]
     Active Substance: DEXAMETHASONE
     Route: 058
     Dates: start: 20140409
  3. POMALIDOMIDE [Suspect]
     Active Substance: POMALIDOMIDE
     Indication: PLASMA CELL MYELOMA
     Dosage: 3 MILLIGRAM
     Route: 048
     Dates: start: 20140402, end: 20140422
  4. DEXAMETHASONE. [Suspect]
     Active Substance: DEXAMETHASONE
     Route: 058
     Dates: start: 20140415
  5. OXYCODON [Concomitant]
     Active Substance: OXYCODONE
     Indication: PAIN
     Dosage: 20 MILLIGRAM
     Route: 048
     Dates: start: 20140325, end: 20140515
  6. DEXAMETHASONE. [Suspect]
     Active Substance: DEXAMETHASONE
     Route: 058
     Dates: start: 20140423
  7. FRAXIPARIN [Concomitant]
     Active Substance: NADROPARIN CALCIUM
     Indication: PROPHYLAXIS
     Dosage: .4 MILLILITER
     Route: 058
     Dates: start: 20131212, end: 20140515

REACTIONS (2)
  - Plasma cell myeloma [Fatal]
  - Drug ineffective [Unknown]

NARRATIVE: CASE EVENT DATE: 2014
